FAERS Safety Report 6191897-6 (Version None)
Quarter: 2009Q2

REPORT INFORMATION
  Report Type: 
  Country: None (occurrence: None)
  Receive Date: 20090515
  Receipt Date: 20090507
  Transmission Date: 20091009
  Serious: Yes (Disabling)
  Sender: FDA-Public Use
  Company Number: PT-GILEAD-2009-0021695

PATIENT
  Sex: Male

DRUGS (1)
  1. VIREAD [Suspect]
     Indication: HEPATITIS B VIRUS TEST
     Route: 048
     Dates: start: 20090301

REACTIONS (1)
  - MIGRAINE [None]
